FAERS Safety Report 9686049 (Version 2)
Quarter: 2013Q4

REPORT INFORMATION
  Report Type: Spontaneous
  Country: None (occurrence: US)
  Receive Date: 20131113
  Receipt Date: 20131113
  Transmission Date: 20140711
  Serious: No
  Sender: FDA-Public Use
  Company Number: US-ALLERGAN-1300247US

PATIENT
  Sex: Male

DRUGS (8)
  1. COMBIGAN[R] [Suspect]
     Indication: GLAUCOMA
     Dosage: 1 GTT, BID
     Route: 047
     Dates: start: 20121210, end: 20130103
  2. TRIBENZOR [Concomitant]
     Indication: HYPERTENSION
     Dosage: 20 MG, QD
     Route: 048
     Dates: start: 201208
  3. TRIBENZOR [Concomitant]
     Dosage: 12 MG, QD
     Route: 048
     Dates: start: 201208
  4. TRIBENZOR [Concomitant]
     Dosage: 12.5 MG, QD
     Route: 048
     Dates: start: 201208
  5. CRESTOR                            /01588601/ [Concomitant]
     Indication: HYPERCHOLESTEROLAEMIA
     Dosage: 10 MG, QD
     Route: 048
  6. WELCHOL [Concomitant]
     Indication: HYPERCHOLESTEROLAEMIA
     Dosage: 3750 MG, QD
     Route: 048
  7. LUMIGAN [Concomitant]
     Indication: GLAUCOMA
     Dosage: 1 GTT, QHS
     Route: 047
  8. PRED FORTE [Concomitant]
     Indication: GLAUCOMA
     Dosage: 1 GTT, Q MONTH
     Route: 047

REACTIONS (8)
  - Dyspnoea [Recovering/Resolving]
  - Blood pressure systolic increased [Recovering/Resolving]
  - Fatigue [Recovering/Resolving]
  - Visual acuity reduced [Recovering/Resolving]
  - Dry eye [Recovering/Resolving]
  - Dry mouth [Recovering/Resolving]
  - Foreign body sensation in eyes [Recovering/Resolving]
  - Headache [Recovering/Resolving]
